FAERS Safety Report 10080969 (Version 2)
Quarter: 2014Q2

REPORT INFORMATION
  Report Type: Spontaneous
  Country: US (occurrence: US)
  Receive Date: 20140416
  Receipt Date: 20140416
  Transmission Date: 20141212
  Serious: Yes (Other)
  Sender: FDA-Public Use
  Company Number: US-PFIZER INC-2014102065

PATIENT
  Sex: Female

DRUGS (2)
  1. ZOLOFT [Suspect]
     Dosage: UNK
     Route: 048
     Dates: start: 20060423
  2. SERTRALINE HCL [Suspect]
     Dosage: UNK
     Route: 048
     Dates: start: 20060423

REACTIONS (1)
  - Convulsion [Unknown]
